FAERS Safety Report 10072801 (Version 1)
Quarter: 2014Q2

REPORT INFORMATION
  Report Type: Spontaneous
  Country: US (occurrence: US)
  Receive Date: 20140411
  Receipt Date: 20140411
  Transmission Date: 20141212
  Serious: No
  Sender: FDA-Public Use
  Company Number: US-MYLANLABS-2013S1024438

PATIENT
  Age: 67 Year
  Sex: Female

DRUGS (2)
  1. DILTIAZEM HCL EXTENDED RELEASE CAPSULES, USP [Suspect]
     Indication: ATRIAL FIBRILLATION
     Route: 048
     Dates: start: 2010, end: 201302
  2. DILTIAZEM HCL EXTENDED RELEASE CAPSULES, USP [Suspect]
     Indication: ATRIAL FIBRILLATION
     Route: 048
     Dates: start: 201302

REACTIONS (2)
  - Medication residue present [Recovered/Resolved]
  - Wrong technique in drug usage process [Not Recovered/Not Resolved]
